FAERS Safety Report 5625937-7 (Version None)
Quarter: 2008Q1

REPORT INFORMATION
  Report Type: 
  Country: None (occurrence: None)
  Receive Date: 20080212
  Receipt Date: 20080212
  Transmission Date: 20080703
  Serious: Yes (Other)
  Sender: FDA-Public Use
  Company Number: None

PATIENT
  Age: 50 Year
  Sex: Male
  Weight: 91.173 kg

DRUGS (2)
  1. ZOCOR [Suspect]
     Indication: BLOOD CHOLESTEROL
     Dosage: 1 TABLET DAILY
     Dates: start: 20020101, end: 20040101
  2. LIPITOR [Suspect]
     Indication: BLOOD CHOLESTEROL
     Dosage: 1 TABLET DIALY
     Dates: start: 20040101, end: 20070101

REACTIONS (9)
  - ANHEDONIA [None]
  - ARTHRALGIA [None]
  - BACK PAIN [None]
  - CATARACT [None]
  - EMOTIONAL DISORDER [None]
  - HYPOGEUSIA [None]
  - MEMORY IMPAIRMENT [None]
  - MIDDLE INSOMNIA [None]
  - WEIGHT LOSS POOR [None]
